FAERS Safety Report 13339147 (Version 1)
Quarter: 2017Q1

REPORT INFORMATION
  Report Type: Spontaneous
  Country: CN (occurrence: CN)
  Receive Date: 20170315
  Receipt Date: 20170315
  Transmission Date: 20170428
  Serious: Yes (Other)
  Sender: FDA-Public Use
  Company Number: CN-BAYER-2017-043077

PATIENT

DRUGS (9)
  1. CALCIUM GLUCONATE. [Concomitant]
     Active Substance: CALCIUM GLUCONATE
     Route: 042
  2. VITAMIN C [Concomitant]
     Active Substance: ASCORBIC ACID
     Indication: RASH
     Route: 042
  3. TEARS NATURALE II [Concomitant]
  4. VIDISIC [Concomitant]
     Dosage: UNK
  5. RIFAMPICIN [Concomitant]
     Active Substance: RIFAMPIN
  6. MOXIFLOXACIN IV [Suspect]
     Active Substance: MOXIFLOXACIN
     Dosage: 0.4 G, QD
     Route: 042
     Dates: start: 20090213, end: 20090218
  7. MOXIFLOXACIN ORAL [Suspect]
     Active Substance: MOXIFLOXACIN
     Dosage: 0.4 G, QD
     Route: 048
     Dates: start: 20090218, end: 20090223
  8. MIZOLASTINE [Concomitant]
     Active Substance: MIZOLASTINE
     Indication: RASH
     Route: 048
  9. DEXAMETHASONE. [Concomitant]
     Active Substance: DEXAMETHASONE
     Indication: RASH
     Dosage: 1.5 MG, BID
     Route: 048

REACTIONS (4)
  - Wound secretion [Recovered/Resolved]
  - Rash erythematous [Recovered/Resolved]
  - Pain [None]
  - Pyrexia [Recovered/Resolved]

NARRATIVE: CASE EVENT DATE: 20090226
